FAERS Safety Report 21859348 (Version 1)
Quarter: 2023Q1

REPORT INFORMATION
  Report Type: Spontaneous
  Country: US (occurrence: None)
  Receive Date: 20230112
  Receipt Date: 20230112
  Transmission Date: 20230417
  Serious: Yes (Other)
  Sender: FDA-Public Use
  Company Number: None

PATIENT
  Age: 69 Year
  Sex: Male
  Weight: 103.5 kg

DRUGS (23)
  1. ELIQUIS [Suspect]
     Active Substance: APIXABAN
     Indication: Thrombosis
     Dates: start: 20221209, end: 20230104
  2. DULOXETINE [Concomitant]
     Active Substance: DULOXETINE
  3. GABAPENTIN [Concomitant]
     Active Substance: GABAPENTIN
  4. HYDROCHLOROTHIAZIDE [Concomitant]
     Active Substance: HYDROCHLOROTHIAZIDE
  5. LEVOTHYROXINE [Concomitant]
     Active Substance: LEVOTHYROXINE
  6. LISINOPRIL [Concomitant]
     Active Substance: LISINOPRIL
  7. METFORMIN [Concomitant]
     Active Substance: METFORMIN HYDROCHLORIDE
  8. METOPROLOL SUCCINATE [Concomitant]
     Active Substance: METOPROLOL SUCCINATE
  9. PRAVASTATIN [Concomitant]
     Active Substance: PRAVASTATIN
  10. XARELTO [Concomitant]
     Active Substance: RIVAROXABAN
  11. ALPHA LIPOIC ACID [Concomitant]
     Active Substance: .ALPHA.-LIPOIC ACID
  12. ASCORBIC ACID [Concomitant]
     Active Substance: ASCORBIC ACID
  13. ASPIRIN [Concomitant]
     Active Substance: ASPIRIN
  14. Bioplasme (essential salts) [Concomitant]
  15. CALCIUM CARBONATE [Concomitant]
     Active Substance: CALCIUM CARBONATE
  16. CHOLECALCIFEROL [Concomitant]
     Active Substance: CHOLECALCIFEROL
  17. COENZYME Q10 [Concomitant]
     Active Substance: DIETARY SUPPLEMENT\UBIDECARENONE
  18. LACTOBACILLUS ACIDOPHILUS [Concomitant]
     Active Substance: LACTOBACILLUS ACIDOPHILUS
  19. MAGNESIUM GLYCINATE [Concomitant]
     Active Substance: MAGNESIUM GLYCINATE
  20. Muti-vitamin [Concomitant]
  21. Omega-3 fatty acids-fish oil [Concomitant]
  22. RIBOFLAVIN [Concomitant]
     Active Substance: RIBOFLAVIN
  23. Stress Tab vitamin B complex [Concomitant]

REACTIONS (12)
  - Arthralgia [None]
  - Peripheral swelling [None]
  - Arthritis [None]
  - Pain in extremity [None]
  - Neuropathy peripheral [None]
  - Gait disturbance [None]
  - Concussion [None]
  - Decreased appetite [None]
  - Joint swelling [None]
  - Product communication issue [None]
  - Incorrect dose administered [None]
  - Discomfort [None]

NARRATIVE: CASE EVENT DATE: 20221209
